FAERS Safety Report 8998920 (Version 1)
Quarter: 2013Q1

REPORT INFORMATION
  Report Type: Spontaneous
  Country: AU (occurrence: AU)
  Receive Date: 20130103
  Receipt Date: 20130103
  Transmission Date: 20140127
  Serious: Yes (Other)
  Sender: FDA-Public Use
  Company Number: AU-PFIZER INC-2013001449

PATIENT
  Sex: Female

DRUGS (3)
  1. ALTVEN [Suspect]
     Indication: DEPRESSION
     Dosage: UNK
  2. ALTVEN [Suspect]
     Indication: ANXIETY
  3. ALTVEN [Suspect]
     Indication: PANIC ATTACK

REACTIONS (2)
  - Violence-related symptom [Unknown]
  - Mental disorder [Unknown]
